FAERS Safety Report 7536832-0 (Version None)
Quarter: 2011Q2

REPORT INFORMATION
  Report Type: 
  Country: None (occurrence: None)
  Receive Date: 20110608
  Receipt Date: 20110608
  Transmission Date: 20111010
  Serious: Yes (Hospitalization)
  Sender: FDA-Public Use
  Company Number: None

PATIENT
  Sex: Male

DRUGS (1)
  1. AVASTIN [Suspect]
     Indication: DIABETIC RETINOPATHY
     Dosage: X1 INTRAOCULAR
     Route: 031

REACTIONS (2)
  - VITREOUS HAEMORRHAGE [None]
  - ANGLE CLOSURE GLAUCOMA [None]
